FAERS Safety Report 6151457-X (Version None)
Quarter: 2009Q2

REPORT INFORMATION
  Report Type: 
  Country: None (occurrence: None)
  Receive Date: 20090410
  Receipt Date: 20090406
  Transmission Date: 20091009
  Serious: Yes (Other)
  Sender: FDA-Public Use
  Company Number: US-BIOGENIDEC-2009BI010446

PATIENT
  Age: 43 Year
  Sex: Female

DRUGS (5)
  1. AVONEX [Suspect]
     Indication: MULTIPLE SCLEROSIS
     Route: 030
     Dates: start: 20070701, end: 20090202
  2. AVONEX [Suspect]
     Route: 030
     Dates: start: 20090301
  3. AZOR [Concomitant]
     Indication: HYPERTENSION
     Dates: end: 20090301
  4. ZYRTEC [Concomitant]
     Indication: PREMEDICATION
  5. XANAX [Concomitant]
     Indication: PREMEDICATION

REACTIONS (7)
  - ANGIOEDEMA [None]
  - DYSARTHRIA [None]
  - HYPERSENSITIVITY [None]
  - NERVOUSNESS [None]
  - PHARYNGEAL OEDEMA [None]
  - SWELLING FACE [None]
  - SWOLLEN TONGUE [None]
